FAERS Safety Report 24605147 (Version 1)
Quarter: 2024Q4

REPORT INFORMATION
  Report Type: Spontaneous
  Country: US (occurrence: US)
  Receive Date: 20241111
  Receipt Date: 20241111
  Transmission Date: 20250114
  Serious: No
  Sender: PARATEK PHARMACEUTICALS
  Company Number: US-PARATEK PHARMACEUTICALS, INC.-2023PTK00505

PATIENT
  Age: 79 Year
  Sex: Female
  Weight: 65.306 kg

DRUGS (17)
  1. NUZYRA [Suspect]
     Active Substance: OMADACYCLINE
     Indication: Mycobacterium abscessus infection
     Dosage: 300 MG, 1X/DAY
     Route: 048
     Dates: start: 202210, end: 202212
  2. NUZYRA [Suspect]
     Active Substance: OMADACYCLINE
     Indication: Pneumonia bacterial
     Dosage: 300 MG, 1X/DAY
     Route: 048
     Dates: start: 20221220
  3. NUZYRA [Suspect]
     Active Substance: OMADACYCLINE
     Dosage: 300 MG, 1X/DAY
     Route: 048
     Dates: start: 20230330
  4. NUZYRA [Suspect]
     Active Substance: OMADACYCLINE
     Dosage: 300 MG, 1X/DAY
     Route: 048
     Dates: start: 20230601
  5. CLOFAZIMINE [Concomitant]
     Active Substance: CLOFAZIMINE
     Dosage: 100 MG, 1X/DAY
     Dates: start: 20230330
  6. CLOFAZIMINE [Concomitant]
     Active Substance: CLOFAZIMINE
     Dosage: 100 MG, 1X/DAY
     Dates: start: 20230601
  7. AMIKACIN [Concomitant]
     Active Substance: AMIKACIN
     Dosage: 1000 MG, 3X/WEEK
     Route: 042
     Dates: start: 202210, end: 202212
  8. AZITHROMYCIN [Concomitant]
     Active Substance: AZITHROMYCIN
     Dosage: 500 MG, 1X/DAY
     Route: 048
     Dates: start: 202210, end: 202212
  9. AZITHROMYCIN [Concomitant]
     Active Substance: AZITHROMYCIN
     Dosage: 500 MG, 1X/DAY
     Route: 048
     Dates: start: 20221220
  10. AZITHROMYCIN [Concomitant]
     Active Substance: AZITHROMYCIN
     Dosage: 500 MG, 1X/DAY
     Route: 048
     Dates: start: 20230330
  11. AZITHROMYCIN [Concomitant]
     Active Substance: AZITHROMYCIN
     Dosage: 250 MG, 1X/DAY
     Route: 048
     Dates: start: 20230601
  12. CEFOXITIN [Concomitant]
     Active Substance: CEFOXITIN SODIUM
     Dosage: 3 G, 2X/DAY
     Route: 042
     Dates: start: 202210, end: 202212
  13. ARIKAYCE [Concomitant]
     Active Substance: AMIKACIN
     Dosage: UNK
     Dates: start: 20221220
  14. ARIKAYCE [Concomitant]
     Active Substance: AMIKACIN
     Dosage: UNK, 1X/DAY
     Dates: start: 20230330
  15. ARIKAYCE [Concomitant]
     Active Substance: AMIKACIN
     Dosage: UNK, 1X/DAY
     Dates: start: 20230601
  16. ZOFRAN [Concomitant]
     Active Substance: ONDANSETRON HYDROCHLORIDE
     Dosage: 8 MG, 1X/DAY
     Dates: start: 20230330
  17. ZOFRAN [Concomitant]
     Active Substance: ONDANSETRON HYDROCHLORIDE
     Dosage: 8 MG, 1X/DAY
     Dates: start: 20230601

REACTIONS (3)
  - Skin discolouration [Not Recovered/Not Resolved]
  - Skin hyperpigmentation [Not Recovered/Not Resolved]
  - Off label use [Not Recovered/Not Resolved]

NARRATIVE: CASE EVENT DATE: 20221001
